FAERS Safety Report 7374643-X (Version None)
Quarter: 2011Q1

REPORT INFORMATION
  Report Type: 
  Country: None (occurrence: None)
  Receive Date: 20110325
  Receipt Date: 20100608
  Transmission Date: 20110831
  Serious: No
  Sender: FDA-Public Use
  Company Number: -MYLANLABS-2010S1010330

PATIENT
  Age: 70 Year
  Sex: Female

DRUGS (2)
  1. FENTANYL-100 [Suspect]
     Indication: PAIN
     Dosage: Q72H
     Route: 062
     Dates: start: 20100601, end: 20100607
  2. OXYCODONE [Concomitant]

REACTIONS (2)
  - OEDEMA PERIPHERAL [None]
  - SKIN DISORDER [None]
